FAERS Safety Report 12047916 (Version 1)
Quarter: 2016Q1

REPORT INFORMATION
  Report Type: Spontaneous
  Country: US (occurrence: US)
  Receive Date: 20160208
  Receipt Date: 20160208
  Transmission Date: 20160526
  Serious: Yes (Hospitalization)
  Sender: FDA-Public Use
  Company Number: US-TEVA-632270USA

PATIENT
  Age: 32 Year
  Sex: Male

DRUGS (1)
  1. BLEOMYCIN [Suspect]
     Active Substance: BLEOMYCIN SULFATE
     Indication: SCLEROTHERAPY
     Route: 065

REACTIONS (1)
  - Pulmonary embolism [Unknown]
